FAERS Safety Report 6438988-X (Version None)
Quarter: 2009Q4

REPORT INFORMATION
  Report Type: 
  Country: None (occurrence: None)
  Receive Date: 20091113
  Receipt Date: 20091105
  Transmission Date: 20100525
  Serious: Yes (Other)
  Sender: FDA-Public Use
  Company Number: FR-AMGEN-UK373040

PATIENT
  Sex: Female

DRUGS (1)
  1. NPLATE [Suspect]

REACTIONS (2)
  - DRUG EFFECT DECREASED [None]
  - THROMBOCYTOPENIA [None]
